APPROVED DRUG PRODUCT: DIVALPROEX SODIUM
Active Ingredient: DIVALPROEX SODIUM
Strength: EQ 125MG VALPROIC ACID
Dosage Form/Route: TABLET, DELAYED RELEASE;ORAL
Application: A090062 | Product #001
Applicant: PHARMOBEDIENT CONSULTING LLC
Approved: Mar 17, 2009 | RLD: No | RS: No | Type: DISCN